FAERS Safety Report 7486333-3 (Version None)
Quarter: 2011Q2

REPORT INFORMATION
  Report Type: 
  Country: None (occurrence: None)
  Receive Date: 20110517
  Receipt Date: 20110504
  Transmission Date: 20111010
  Serious: Yes (Hospitalization, Other)
  Sender: FDA-Public Use
  Company Number: PHHY2011ES37986

PATIENT
  Sex: Female

DRUGS (3)
  1. TACROLIMUS [Suspect]
     Indication: PROPHYLAXIS
  2. MYCOPHENOLATE MOFETIL [Suspect]
     Indication: PROPHYLAXIS
  3. RITUXIMAB [Suspect]
     Indication: LYMPHOPROLIFERATIVE DISORDER

REACTIONS (11)
  - CRYPTOSPORIDIOSIS INFECTION [None]
  - CEREBRAL TOXOPLASMOSIS [None]
  - BILIARY TRACT INFECTION CRYPTOSPORIDIAL [None]
  - DIARRHOEA [None]
  - GRAFT VERSUS HOST DISEASE [None]
  - NAUSEA [None]
  - WEIGHT INCREASED [None]
  - ABDOMINAL PAIN [None]
  - CHOLESTASIS [None]
  - BILE DUCT OBSTRUCTION [None]
  - LYMPHOPROLIFERATIVE DISORDER [None]
